FAERS Safety Report 7148801-3 (Version None)
Quarter: 2010Q4

REPORT INFORMATION
  Report Type: 
  Country: None (occurrence: None)
  Receive Date: 20101209
  Receipt Date: 20101129
  Transmission Date: 20110411
  Serious: Yes (Other)
  Sender: FDA-Public Use
  Company Number: PHHY2010CA31559

PATIENT
  Sex: Female

DRUGS (2)
  1. SANDOSTATIN LAR [Suspect]
     Indication: NEUROENDOCRINE CARCINOMA
     Dosage: 30 MG, QMO
     Route: 030
     Dates: start: 20100416
  2. YTTRIUM (90 Y) [Concomitant]

REACTIONS (17)
  - ABDOMINAL DISTENSION [None]
  - ABDOMINAL PAIN [None]
  - ABDOMINAL PAIN LOWER [None]
  - ABDOMINAL PAIN UPPER [None]
  - ASTHENIA [None]
  - BACK PAIN [None]
  - CHOLECYSTITIS [None]
  - DECREASED APPETITE [None]
  - DYSPNOEA [None]
  - FACIAL PAIN [None]
  - FATIGUE [None]
  - FLATULENCE [None]
  - HEPATIC EMBOLISATION [None]
  - INSOMNIA [None]
  - MUSCULOSKELETAL PAIN [None]
  - NEURALGIA [None]
  - WEIGHT INCREASED [None]
